FAERS Safety Report 20393420 (Version 2)
Quarter: 2022Q1

REPORT INFORMATION
  Report Type: Spontaneous
  Country: US (occurrence: US)
  Receive Date: 20220128
  Receipt Date: 20220202
  Transmission Date: 20220424
  Serious: Yes (Hospitalization, Other)
  Sender: FDA-Public Use
  Company Number: US-009507513-2201USA006638

PATIENT
  Sex: Male

DRUGS (1)
  1. KEYTRUDA [Suspect]
     Active Substance: PEMBROLIZUMAB
     Indication: Non-small cell lung cancer

REACTIONS (5)
  - Colitis [Unknown]
  - Clostridium difficile colitis [Unknown]
  - Rectal haemorrhage [Not Recovered/Not Resolved]
  - Colostomy [Unknown]
  - Pain [Not Recovered/Not Resolved]
